FAERS Safety Report 17102075 (Version 1)
Quarter: 2019Q4

REPORT INFORMATION
  Report Type: Spontaneous
  Country: US (occurrence: US)
  Receive Date: 20191202
  Receipt Date: 20191202
  Transmission Date: 20200122
  Serious: No
  Sender: FDA-Public Use
  Company Number: US-GE HEALTHCARE LIFE SCIENCES-2019CSU001710

PATIENT
  Age: 70 Year
  Sex: Male
  Weight: 103 kg

DRUGS (2)
  1. OMNIPAQUE [Suspect]
     Active Substance: IOHEXOL
     Indication: SPINAL MYELOGRAM
     Dosage: 10 ML, SINGLE
     Route: 037
     Dates: start: 20190321, end: 20190321
  2. OMNIPAQUE [Suspect]
     Active Substance: IOHEXOL
     Indication: SPINAL OSTEOARTHRITIS

REACTIONS (2)
  - Drug ineffective [Recovered/Resolved with Sequelae]
  - No adverse event [Recovered/Resolved with Sequelae]

NARRATIVE: CASE EVENT DATE: 20190321
